FAERS Safety Report 6998824-X (Version None)
Quarter: 2010Q3

REPORT INFORMATION
  Report Type: 
  Country: None (occurrence: None)
  Receive Date: 20100920
  Receipt Date: 20070524
  Transmission Date: 20110219
  Serious: Yes (Disabling, Other)
  Sender: FDA-Public Use
  Company Number: US-ASTRAZENECA-2006UW22785

PATIENT
  Age: 436 Month
  Sex: Male
  Weight: 125.2 kg

DRUGS (13)
  1. SEROQUEL [Suspect]
     Indication: BIPOLAR DISORDER
     Route: 048
     Dates: start: 20000101, end: 20060101
  2. SEROQUEL [Suspect]
     Indication: SCHIZOPHRENIA
     Route: 048
     Dates: start: 20000101, end: 20060101
  3. SEROQUEL [Suspect]
     Dosage: 150MG TO 400MG
     Route: 048
     Dates: start: 20000629
  4. SEROQUEL [Suspect]
     Dosage: 150MG TO 400MG
     Route: 048
     Dates: start: 20000629
  5. ABILIFY [Concomitant]
     Dates: start: 20060324
  6. HALDOL [Concomitant]
     Dates: start: 20010501
  7. HALDOL [Concomitant]
     Dates: start: 20000317
  8. DEPAKOTE [Concomitant]
     Route: 048
     Dates: start: 20000317
  9. ZYPREXA [Concomitant]
     Dates: start: 20000601
  10. HYDROCHLOROTHIAZIDE [Concomitant]
     Indication: HYPERTENSION
     Route: 048
     Dates: start: 20051222
  11. GLIPIZIDE [Concomitant]
     Route: 048
     Dates: start: 20040812
  12. COGENTIN [Concomitant]
     Route: 048
     Dates: start: 20021231
  13. REGULAR INSULIN [Concomitant]
     Dosage: BSL}180-4 UNITS, BSL}240-8 UNITS, BSL}300-12UNITS, BSL}350-16UNITS
     Route: 058
     Dates: start: 20051221

REACTIONS (4)
  - DIABETES MELLITUS [None]
  - PANCREATITIS [None]
  - TARDIVE DYSKINESIA [None]
  - TYPE 2 DIABETES MELLITUS [None]
